FAERS Safety Report 8539529-3 (Version None)
Quarter: 2012Q3

REPORT INFORMATION
  Report Type: 
  Country: None (occurrence: None)
  Receive Date: 20120726
  Receipt Date: 20120716
  Transmission Date: 20120928
  Serious: Yes (Other)
  Sender: FDA-Public Use
  Company Number: US-BAYER-2012-072325

PATIENT
  Age: 55 Year
  Sex: Female
  Weight: 70 kg

DRUGS (7)
  1. YAZ [Suspect]
     Indication: MENORRHAGIA
  2. YAZ [Suspect]
     Indication: MENSTRUATION IRREGULAR
  3. LOVAZA [Concomitant]
  4. TRAZODONE HYDROCHLORIDE [Concomitant]
     Dosage: 50 MG, UNK
  5. AMOXICILLIN [Concomitant]
     Dosage: 500 MG, UNK
  6. XANAX [Concomitant]
     Dosage: 0.25 MG, UNK
  7. LEXAPRO [Concomitant]

REACTIONS (3)
  - THROMBOPHLEBITIS SUPERFICIAL [None]
  - PULMONARY EMBOLISM [None]
  - AXILLARY VEIN THROMBOSIS [None]
